FAERS Safety Report 15053223 (Version 2)
Quarter: 2019Q3

REPORT INFORMATION
  Report Type: Report from Study
  Country: US (occurrence: US)
  Receive Date: 20180622
  Receipt Date: 20190805
  Transmission Date: 20191004
  Serious: Yes (Hospitalization, Other)
  Sender: FDA-Public Use
  Company Number: US-ACTELION-A-US2018-174101

PATIENT
  Sex: Female

DRUGS (3)
  1. OXYGEN. [Concomitant]
     Active Substance: OXYGEN
  2. EFFIENT [Concomitant]
     Active Substance: PRASUGREL HYDROCHLORIDE
  3. OPSUMIT [Suspect]
     Active Substance: MACITENTAN
     Indication: PULMONARY ARTERIAL HYPERTENSION
     Dosage: 10 MG, QD
     Route: 048
     Dates: start: 20170821

REACTIONS (3)
  - Stent placement [Unknown]
  - Hypoacusis [Not Recovered/Not Resolved]
  - Neck surgery [Not Recovered/Not Resolved]
